FAERS Safety Report 11251615 (Version 1)
Quarter: 2015Q3

REPORT INFORMATION
  Report Type: Spontaneous
  Country: US (occurrence: US)
  Receive Date: 20150708
  Receipt Date: 20150708
  Transmission Date: 20151125
  Serious: No
  Sender: FDA-Public Use
  Company Number: US-ELI_LILLY_AND_COMPANY-US201201001304

PATIENT
  Age: 53 Year
  Sex: Female

DRUGS (3)
  1. SEROQUEL [Concomitant]
     Active Substance: QUETIAPINE FUMARATE
     Indication: BIPOLAR DISORDER
  2. SYMBYAX [Suspect]
     Active Substance: FLUOXETINE HYDROCHLORIDE\OLANZAPINE
     Indication: BIPOLAR DISORDER
     Dosage: 6MG/25MG DAILY
     Route: 048
  3. SYMBYAX [Suspect]
     Active Substance: FLUOXETINE HYDROCHLORIDE\OLANZAPINE
     Dosage: 6MG/25MG DAILY
     Route: 048

REACTIONS (3)
  - Panic attack [Unknown]
  - Drug dose omission [Unknown]
  - Chills [Unknown]
